FAERS Safety Report 21328502 (Version 3)
Quarter: 2023Q1

REPORT INFORMATION
  Report Type: Report from Study
  Country: US (occurrence: US)
  Receive Date: 20220913
  Receipt Date: 20230218
  Transmission Date: 20230417
  Serious: No
  Sender: FDA-Public Use
  Company Number: US-NOVARTISTESTPH-NVSC2022US203694

PATIENT
  Sex: Female
  Weight: 158.8 kg

DRUGS (1)
  1. KESIMPTA [Suspect]
     Active Substance: OFATUMUMAB
     Indication: Relapsing multiple sclerosis
     Dosage: UNK
     Route: 058
     Dates: start: 20210616

REACTIONS (4)
  - Pain [Unknown]
  - Arthropod sting [Unknown]
  - Fall [Unknown]
  - Gait disturbance [Unknown]
